FAERS Safety Report 10100782 (Version 1)
Quarter: 2014Q2

REPORT INFORMATION
  Report Type: Spontaneous
  Country: BR (occurrence: BR)
  Receive Date: 20140423
  Receipt Date: 20140423
  Transmission Date: 20141212
  Serious: Yes (Other)
  Sender: FDA-Public Use
  Company Number: PHHY2014BR047559

PATIENT
  Age: 53 Year
  Sex: Male

DRUGS (3)
  1. GALVUS MET [Suspect]
     Indication: TYPE 2 DIABETES MELLITUS
     Dosage: 2 DF, DAILY (850 MG METF AND 50 MG VILD)
     Route: 048
     Dates: start: 201305
  2. HYDROCHLOROTHIAZIDE, LOSARTAN [Suspect]
     Indication: HYPERTENSION
     Dosage: 2 DF, (12.5 MG HYDR AND 50 MG LOSA) DAILY
     Route: 048
     Dates: start: 201310
  3. ARADOIS H [Suspect]
     Dosage: 2 DF, (12.5 HCTZ/50 LOSA MG) DAILY
     Route: 048

REACTIONS (5)
  - Haemorrhage [Not Recovered/Not Resolved]
  - Wound complication [Not Recovered/Not Resolved]
  - Hypersensitivity [Not Recovered/Not Resolved]
  - Blood pressure abnormal [Unknown]
  - Nervousness [Unknown]
